FAERS Safety Report 5675484-1 (Version None)
Quarter: 2008Q1

REPORT INFORMATION
  Report Type: 
  Country: None (occurrence: None)
  Receive Date: 20080321
  Receipt Date: 20080321
  Transmission Date: 20080703
  Serious: Yes (Life-Threatening, Hospitalization)
  Sender: FDA-Public Use
  Company Number: None

PATIENT
  Age: 66 Year
  Sex: Male
  Weight: 70.3075 kg

DRUGS (1)
  1. HEPARIN [Suspect]

REACTIONS (6)
  - APHASIA [None]
  - ASTHENIA [None]
  - BLINDNESS [None]
  - DISORIENTATION [None]
  - LOSS OF CONSCIOUSNESS [None]
  - NONSPECIFIC REACTION [None]
